FAERS Safety Report 7027077-1 (Version None)
Quarter: 2010Q4

REPORT INFORMATION
  Report Type: 
  Country: None (occurrence: None)
  Receive Date: 20101004
  Receipt Date: 20100924
  Transmission Date: 20110411
  Serious: Yes (Hospitalization)
  Sender: FDA-Public Use
  Company Number: FR-BAYER-201039645GPV

PATIENT
  Age: 67 Year
  Sex: Female
  Weight: 74 kg

DRUGS (5)
  1. SORAFENIB [Suspect]
     Indication: THYROID CANCER
     Dosage: TOTAL DAILY DOSE: 400 MG
     Route: 048
     Dates: start: 20100818, end: 20100913
  2. SORAFENIB [Suspect]
     Dosage: TOTAL DAILY DOSE: 200 MG
     Route: 048
     Dates: start: 20100818, end: 20100913
  3. LEVOTHYROXINE SODIUM [Concomitant]
     Indication: THYROIDECTOMY
     Route: 048
     Dates: start: 19891201
  4. NEXIUM [Concomitant]
     Indication: DYSPEPSIA
     Route: 048
     Dates: start: 20100720
  5. EXFORGE [Concomitant]
     Indication: HYPERTENSION
     Dosage: 10MG/160MG
     Route: 048
     Dates: start: 20100802

REACTIONS (1)
  - CEREBROVASCULAR ACCIDENT [None]
